FAERS Safety Report 12374252 (Version 1)
Quarter: 2016Q2

REPORT INFORMATION
  Report Type: Spontaneous
  Country: US (occurrence: None)
  Receive Date: 20160516
  Receipt Date: 20160516
  Transmission Date: 20160815
  Serious: No
  Sender: FDA-Public Use
  Company Number: None

PATIENT
  Age: 70 Year
  Sex: Female
  Weight: 56.7 kg

DRUGS (11)
  1. ACTEMERA [Concomitant]
  2. FOLIC ACID. [Concomitant]
     Active Substance: FOLIC ACID
  3. PRILOSEC [Concomitant]
     Active Substance: OMEPRAZOLE MAGNESIUM
  4. METHELTREXATE [Concomitant]
  5. MIRAPEX [Concomitant]
     Active Substance: PRAMIPEXOLE DIHYDROCHLORIDE
  6. NAPROXEN. [Concomitant]
     Active Substance: NAPROXEN
  7. LEVOFLOXACIN. [Suspect]
     Active Substance: LEVOFLOXACIN
     Indication: BRONCHITIS
     Dosage: ONCE A DAY
     Route: 048
     Dates: start: 20160323, end: 20160403
  8. LEUCOVORIN. [Concomitant]
     Active Substance: LEUCOVORIN
  9. TRASIDONE [Concomitant]
  10. VYVANSE [Concomitant]
     Active Substance: LISDEXAMFETAMINE DIMESYLATE
  11. PREDNISONE. [Concomitant]
     Active Substance: PREDNISONE

REACTIONS (12)
  - Contraindicated drug administered [None]
  - Toxicity to various agents [None]
  - Fear [None]
  - Tendonitis [None]
  - Confusional state [None]
  - Hypertension [None]
  - Malaise [None]
  - Fatigue [None]
  - Asthenia [None]
  - Chest discomfort [None]
  - Muscle rupture [None]
  - Disorientation [None]

NARRATIVE: CASE EVENT DATE: 20160328
